FAERS Safety Report 25716561 (Version 1)
Quarter: 2025Q3

REPORT INFORMATION
  Report Type: Spontaneous
  Country: EU (occurrence: EU)
  Receive Date: 20250822
  Receipt Date: 20250822
  Transmission Date: 20251021
  Serious: Yes (Other)
  Sender: ORGANON
  Company Number: EU-Orion Corporation ORION PHARMA-METF2021-0006

PATIENT
  Sex: Male
  Weight: 125 kg

DRUGS (25)
  1. SIMVASTATIN [Suspect]
     Active Substance: SIMVASTATIN
     Indication: Gout
     Dosage: 40 MILLIGRAM, 1 X 1
     Route: 065
  2. SIMVASTATIN [Suspect]
     Active Substance: SIMVASTATIN
     Indication: Type 2 diabetes mellitus
     Dosage: 1 DF, QD
  3. SIMVASTATIN [Suspect]
     Active Substance: SIMVASTATIN
     Indication: Hypertension
  4. SIMVASTATIN [Suspect]
     Active Substance: SIMVASTATIN
     Indication: Dyslipidaemia
  5. ENALAPRIL MALEATE [Suspect]
     Active Substance: ENALAPRIL MALEATE
     Indication: Gout
     Dosage: 20 MILLIGRAM, 1 X 1
     Route: 065
  6. ENALAPRIL MALEATE [Suspect]
     Active Substance: ENALAPRIL MALEATE
     Indication: Type 2 diabetes mellitus
     Dosage: 1 DF, QD
  7. ENALAPRIL MALEATE [Suspect]
     Active Substance: ENALAPRIL MALEATE
     Indication: Dyslipidaemia
  8. ENALAPRIL MALEATE [Suspect]
     Active Substance: ENALAPRIL MALEATE
     Indication: Hypertension
  9. ALLOPURINOL [Suspect]
     Active Substance: ALLOPURINOL
     Indication: Gout
     Dosage: 100 MILLIGRAM, 1 X 1
     Route: 065
  10. ALLOPURINOL [Suspect]
     Active Substance: ALLOPURINOL
     Indication: Dyslipidaemia
     Dosage: 1 DF, QD
  11. ALLOPURINOL [Suspect]
     Active Substance: ALLOPURINOL
     Indication: Type 2 diabetes mellitus
  12. ALLOPURINOL [Suspect]
     Active Substance: ALLOPURINOL
     Indication: Hypertension
  13. METFORMIN [Suspect]
     Active Substance: METFORMIN HYDROCHLORIDE
     Indication: Dyslipidaemia
     Dosage: 1 GRAM, 1 X 1
     Route: 065
  14. METFORMIN [Suspect]
     Active Substance: METFORMIN HYDROCHLORIDE
     Indication: Type 2 diabetes mellitus
     Dosage: 1 DF, BID
     Route: 048
  15. METFORMIN [Suspect]
     Active Substance: METFORMIN HYDROCHLORIDE
     Indication: Hypertension
     Dosage: 1 GRAM, BID
     Route: 048
  16. METFORMIN [Suspect]
     Active Substance: METFORMIN HYDROCHLORIDE
     Indication: Gout
  17. AMLODIPINE [Suspect]
     Active Substance: AMLODIPINE BESYLATE
     Indication: Dyslipidaemia
     Dosage: 5 MILLIGRAM, 1 X 2
     Route: 065
  18. AMLODIPINE [Suspect]
     Active Substance: AMLODIPINE BESYLATE
     Indication: Gout
     Dosage: 5 MILLIGRAM, 1 X 1
     Route: 065
  19. AMLODIPINE [Suspect]
     Active Substance: AMLODIPINE BESYLATE
     Indication: Hypertension
     Dosage: 1 DF, QD
  20. AMLODIPINE [Suspect]
     Active Substance: AMLODIPINE BESYLATE
     Indication: Type 2 diabetes mellitus
     Dosage: 1 DF, BID
  21. CANDESARTAN [Concomitant]
     Active Substance: CANDESARTAN
     Dosage: 16 MILLIGRAM, QD
  22. DAPAGLIFLOZIN [Concomitant]
     Active Substance: DAPAGLIFLOZIN
     Dosage: 10 MILLIGRAM, QD
  23. ETORICOXIB [Concomitant]
     Active Substance: ETORICOXIB
     Indication: Musculoskeletal pain
     Dosage: 60 MG, PRN
  24. SITAGLIPTIN [Concomitant]
     Active Substance: SITAGLIPTIN
     Dosage: 10 MILLIGRAM, QD
  25. ORPHENADRINE [Concomitant]
     Active Substance: ORPHENADRINE
     Indication: Musculoskeletal pain
     Dosage: IN THE EVENING

REACTIONS (6)
  - Haematochezia [Recovered/Resolved]
  - Abdominal distension [Recovered/Resolved]
  - Diarrhoea [Recovered/Resolved]
  - Flatulence [Recovered/Resolved]
  - Haemorrhoids [Recovered/Resolved]
  - Faeces discoloured [Recovered/Resolved]
